FAERS Safety Report 14206448 (Version 1)
Quarter: 2017Q4

REPORT INFORMATION
  Report Type: Spontaneous
  Country: US (occurrence: US)
  Receive Date: 20171120
  Receipt Date: 20171120
  Transmission Date: 20180321
  Serious: No
  Sender: FDA-Public Use
  Company Number: US-TEIKOKU PHARMA USA-TPU2017-00712

PATIENT
  Sex: Female

DRUGS (1)
  1. LIDODERM [Suspect]
     Active Substance: LIDOCAINE
     Indication: PRODUCT USED FOR UNKNOWN INDICATION

REACTIONS (8)
  - Dry mouth [Unknown]
  - Vomiting [Unknown]
  - Chills [Unknown]
  - Wrong technique in product usage process [Unknown]
  - Retching [Unknown]
  - Ocular discomfort [Unknown]
  - Dizziness [Unknown]
  - Decreased appetite [Unknown]
